FAERS Safety Report 22750834 (Version 2)
Quarter: 2023Q4

REPORT INFORMATION
  Report Type: Spontaneous
  Country: DE (occurrence: DE)
  Receive Date: 20230726
  Receipt Date: 20231026
  Transmission Date: 20240110
  Serious: Yes (Death, Other)
  Sender: FDA-Public Use
  Company Number: DE-DCGMA-23201467

PATIENT
  Age: 76 Year
  Sex: Male
  Weight: 72 kg

DRUGS (8)
  1. ATORVASTATIN [Suspect]
     Active Substance: ATORVASTATIN
     Indication: Product used for unknown indication
     Dates: start: 202205
  2. TAMSULOSIN HYDROCHLORIDE [Concomitant]
     Active Substance: TAMSULOSIN HYDROCHLORIDE
     Indication: Benign prostatic hyperplasia
     Route: 048
  3. CANDESARTAN [Concomitant]
     Active Substance: CANDESARTAN
     Indication: Hypertension
  4. PENTAERYTHRITOL TETRANITRATE [Concomitant]
     Active Substance: PENTAERYTHRITOL TETRANITRATE
     Indication: Coronary artery disease
  5. FINASTERIDE [Concomitant]
     Active Substance: FINASTERIDE
     Indication: Benign prostatic hyperplasia
     Route: 048
  6. TORSEMIDE [Concomitant]
     Active Substance: TORSEMIDE
     Indication: Cardiac failure chronic
     Route: 048
  7. ELIQUIS [Concomitant]
     Active Substance: APIXABAN
     Indication: Atrial fibrillation
  8. RANEXA [Concomitant]
     Active Substance: RANOLAZINE
     Indication: Coronary artery disease
     Route: 048

REACTIONS (1)
  - Autoimmune hepatitis [Fatal]

NARRATIVE: CASE EVENT DATE: 20220829
